FAERS Safety Report 8609001-0 (Version None)
Quarter: 2012Q3

REPORT INFORMATION
  Report Type: 
  Country: None (occurrence: None)
  Receive Date: 20120821
  Receipt Date: 20120810
  Transmission Date: 20120928
  Serious: Yes (Congenital Anomaly)
  Sender: FDA-Public Use
  Company Number: US-GLAXOSMITHKLINE-A0990141A

PATIENT
  Sex: Female

DRUGS (5)
  1. TRAZODONE HYDROCHLORIDE [Concomitant]
     Route: 064
  2. PAXIL [Suspect]
     Indication: DEPRESSION
     Route: 064
  3. SEROQUEL [Concomitant]
     Route: 064
  4. LAMICTAL [Concomitant]
     Route: 064
  5. KLONOPIN [Concomitant]
     Route: 064

REACTIONS (2)
  - FOETAL EXPOSURE DURING PREGNANCY [None]
  - TALIPES [None]
